FAERS Safety Report 5640400-5 (Version None)
Quarter: 2008Q1

REPORT INFORMATION
  Report Type: 
  Country: None (occurrence: None)
  Receive Date: 20080227
  Receipt Date: 20080215
  Transmission Date: 20080703
  Serious: No
  Sender: FDA-Public Use
  Company Number: US-BAXTER-2008BH000324

PATIENT
  Age: 72 Year
  Sex: Female
  Weight: 105 kg

DRUGS (2)
  1. HEPARIN SODIUM [Suspect]
     Indication: ANTICOAGULANT THERAPY
     Route: 040
     Dates: start: 20080108, end: 20080108
  2. HEPARIN SODIUM [Suspect]
     Route: 042
     Dates: start: 20080108, end: 20080108

REACTIONS (3)
  - DIZZINESS [None]
  - DYSPNOEA [None]
  - HYPOTENSION [None]
